FAERS Safety Report 4837097-0 (Version None)
Quarter: 2005Q4

REPORT INFORMATION
  Report Type: 
  Country: None (occurrence: None)
  Receive Date: 20051122
  Receipt Date: 20051111
  Transmission Date: 20060501
  Serious: Yes (Other)
  Sender: FDA-Public Use
  Company Number: 2005146033

PATIENT
  Age: 75 Year
  Sex: Male
  Weight: 82.5547 kg

DRUGS (7)
  1. LIPITOR [Suspect]
     Indication: LIPIDS
     Dosage: 10 MG (10 MG, 1 IN 1 D), ORAL
     Route: 048
  2. CASODEX [Suspect]
     Indication: PROSTATE CANCER
     Dosage: 1 IN 1 D
     Dates: start: 20050101, end: 20050101
  3. THERAPEUTIC RADIOPHARMACEUTICALS (THERAPEUTIC RADIOPHARMACEUTICALS) [Suspect]
     Indication: PROSTATE CANCER
     Dates: start: 20050801
  4. PRINIVIL [Suspect]
     Indication: BLOOD TRIGLYCERIDES INCREASED
     Dosage: 40 MG
  5. HYDROCHLOROTHIAZIDE [Concomitant]
  6. ATENOLOL [Concomitant]
  7. CALCIUM (CALCIUM) [Concomitant]

REACTIONS (10)
  - ASTHENIA [None]
  - BLOOD PRESSURE DECREASED [None]
  - BLOOD TRIGLYCERIDES INCREASED [None]
  - COLD SWEAT [None]
  - DECREASED APPETITE [None]
  - HOT FLUSH [None]
  - NAUSEA [None]
  - PROSTATE CANCER [None]
  - PROSTATIC SPECIFIC ANTIGEN INCREASED [None]
  - WEIGHT DECREASED [None]
